FAERS Safety Report 23278768 (Version 2)
Quarter: 2023Q4

REPORT INFORMATION
  Report Type: Spontaneous
  Country: CN (occurrence: CN)
  Receive Date: 20231208
  Receipt Date: 20231211
  Transmission Date: 20240110
  Serious: Yes (Hospitalization)
  Sender: FDA-Public Use
  Company Number: CN-009507513-2312CHN001619

PATIENT
  Age: 49 Year
  Sex: Female
  Weight: 60.5 kg

DRUGS (1)
  1. NOXAFIL [Suspect]
     Active Substance: POSACONAZOLE
     Indication: Antifungal treatment
     Dosage: 3 TABLETS, QD
     Route: 048
     Dates: start: 20231114, end: 20231120

REACTIONS (6)
  - Peripheral swelling [Recovering/Resolving]
  - Musculoskeletal pain [Recovering/Resolving]
  - Tendon disorder [Recovering/Resolving]
  - Musculoskeletal discomfort [Recovering/Resolving]
  - Joint effusion [Unknown]
  - Inappropriate schedule of product administration [Unknown]

NARRATIVE: CASE EVENT DATE: 20231101
